FAERS Safety Report 15232037 (Version 7)
Quarter: 2018Q4

REPORT INFORMATION
  Report Type: Spontaneous
  Country: IE (occurrence: IE)
  Receive Date: 20180802
  Receipt Date: 20181226
  Transmission Date: 20190204
  Serious: Yes (Hospitalization, Other)
  Sender: FDA-Public Use
  Company Number: IE-MYLANLABS-2018M1059579

PATIENT
  Age: 73 Year
  Sex: Female
  Weight: 50 kg

DRUGS (3)
  1. CLOZARIL [Suspect]
     Active Substance: CLOZAPINE
     Indication: SCHIZOPHRENIA
     Dosage: UNK
     Route: 048
     Dates: start: 20131021
  2. CLOZARIL [Suspect]
     Active Substance: CLOZAPINE
     Dosage: UNK
     Route: 048
     Dates: end: 20181201
  3. CLOZARIL [Suspect]
     Active Substance: CLOZAPINE
     Dosage: UNK, QD
     Route: 048

REACTIONS (4)
  - White blood cell count decreased [Recovered/Resolved]
  - Lung cancer metastatic [Not Recovered/Not Resolved]
  - Neutropenia [Recovered/Resolved]
  - Platelet count decreased [Recovered/Resolved]

NARRATIVE: CASE EVENT DATE: 20181126
